FAERS Safety Report 24754171 (Version 2)
Quarter: 2024Q4

REPORT INFORMATION
  Report Type: Spontaneous
  Country: US (occurrence: US)
  Receive Date: 20241219
  Receipt Date: 20241224
  Transmission Date: 20250114
  Serious: No
  Sender: TORRENT PHARMA INC.
  Company Number: US-TORRENT-00013899

PATIENT
  Age: 74 Year
  Sex: Female
  Weight: 56 kg

DRUGS (3)
  1. ROSUVASTATIN [Suspect]
     Active Substance: ROSUVASTATIN
     Indication: Blood cholesterol
     Dosage: ONCE A DAY 5 MG ORALLY
     Route: 065
  2. FLONASE [Concomitant]
     Active Substance: FLUTICASONE PROPIONATE
     Indication: Seasonal allergy
     Dosage: UNKNOWN
     Route: 065
  3. VITAMIN D [Concomitant]
     Active Substance: VITAMIN D NOS
     Indication: Product used for unknown indication
     Route: 065

REACTIONS (3)
  - Blood cholesterol abnormal [Unknown]
  - Product availability issue [Unknown]
  - Pain [Unknown]
